FAERS Safety Report 5448484-4 (Version None)
Quarter: 2007Q3

REPORT INFORMATION
  Report Type: 
  Country: None (occurrence: None)
  Receive Date: 20070911
  Receipt Date: 20070828
  Transmission Date: 20080115
  Serious: Yes (Death, Other)
  Sender: FDA-Public Use
  Company Number: US-ELI_LILLY_AND_COMPANY-US200708006206

PATIENT
  Age: 81 Year
  Sex: Male

DRUGS (1)
  1. FORTEO [Suspect]
     Indication: BONE DISORDER
     Dates: end: 20070101

REACTIONS (2)
  - DYSPNOEA [None]
  - EMPHYSEMA [None]
